FAERS Safety Report 12177688 (Version 1)
Quarter: 2016Q1

REPORT INFORMATION
  Report Type: Other
  Country: GB (occurrence: GB)
  Receive Date: 20160315
  Receipt Date: 20160315
  Transmission Date: 20160526
  Serious: Yes (Other)
  Sender: FDA-Public Use
  Company Number: GB-CIPLA LTD.-2016GB02376

PATIENT

DRUGS (24)
  1. ATORVASTATIN [Concomitant]
     Active Substance: ATORVASTATIN
     Dosage: 1 DF, QD, AT NIGHT
     Route: 065
     Dates: start: 20160113
  2. CLOPIDOGREL [Concomitant]
     Active Substance: CLOPIDOGREL BISULFATE
     Dosage: 1 DF, QD
     Route: 065
     Dates: start: 20150511
  3. CYCLIZINE [Concomitant]
     Active Substance: CYCLIZINE
     Dosage: UNK UNK, PRN
     Route: 065
     Dates: start: 20160128, end: 20160207
  4. NASONEX [Concomitant]
     Active Substance: MOMETASONE FUROATE
     Dosage: 2 DF, QD, EACH NOSTRIL
     Route: 065
     Dates: start: 20140306
  5. ISPAGHULA EXTRACT\PSYLLIUM [Concomitant]
     Active Substance: PLANTAGO OVATA SEED\PLANTAGO SEED
     Dosage: 1 DF, BID, ORANGE
     Route: 065
     Dates: start: 20150423
  6. PANTOPRAZOLE [Concomitant]
     Active Substance: PANTOPRAZOLE SODIUM
     Dosage: 1 DF, BID
     Route: 065
     Dates: start: 20120430
  7. SIMVASTATIN. [Concomitant]
     Active Substance: SIMVASTATIN
     Dosage: 1 DF, QD
     Route: 065
     Dates: start: 20061020, end: 20160113
  8. TIOTROPIUM [Concomitant]
     Active Substance: TIOTROPIUM
     Dosage: 1 DF, QD
     Route: 065
     Dates: start: 20120301
  9. BISOPROLOL [Concomitant]
     Active Substance: BISOPROLOL
     Dosage: 1 DF, QD
     Route: 065
     Dates: start: 20160113
  10. DOSULEPIN HYDROCHLORIDE [Concomitant]
     Active Substance: DOTHIEPIN HYDROCHLORIDE
     Dosage: UNK, 2-3 AT NIGHT
     Route: 065
     Dates: start: 20111125
  11. FEXOFENIFDINE [Concomitant]
     Dosage: 1 DF, QD
     Route: 065
     Dates: start: 20140729, end: 20160128
  12. GLYCERYL TRINITRATE [Concomitant]
     Active Substance: NITROGLYCERIN
     Dosage: UNK
     Route: 065
     Dates: start: 20061020
  13. PIROXICAM. [Concomitant]
     Active Substance: PIROXICAM
     Dosage: UNK, PRN
     Route: 065
     Dates: start: 20111125
  14. SYMBICORT [Concomitant]
     Active Substance: BUDESONIDE\FORMOTEROL FUMARATE DIHYDRATE
     Dosage: 2 DF, BID
     Route: 065
     Dates: start: 20140729
  15. RAMIPRIL. [Suspect]
     Active Substance: RAMIPRIL
     Dosage: UNK
     Route: 065
     Dates: start: 20160113
  16. DILTIAZEM [Concomitant]
     Active Substance: DILTIAZEM
     Dosage: 1 DF, QD
     Route: 065
     Dates: start: 20061020
  17. ISOSORBIDE MONONITRATE. [Concomitant]
     Active Substance: ISOSORBIDE MONONITRATE
     Dosage: UNK, IN THE MORNING
     Dates: start: 20130705
  18. SALBUTAMOL [Concomitant]
     Active Substance: ALBUTEROL
     Dosage: 1-2 PUFFS FOUR TIMES PER DAY, PRN
     Route: 065
     Dates: start: 20111125
  19. MUCOGEL [Concomitant]
     Active Substance: ALUMINUM HYDROXIDE\MAGNESIUM HYDROXIDE
     Dosage: 10 ML, TID
     Route: 065
     Dates: start: 20111130
  20. PARACETAMOL [Concomitant]
     Active Substance: ACETAMINOPHEN
     Dosage: UNK, TAKE 1 OR 2 4 TIMES A DAY
     Route: 065
     Dates: start: 20151119
  21. CO-AMOXICLAV [Concomitant]
     Active Substance: AMOXICILLIN\CLAVULANIC ACID
     Dosage: 1 DF, TID
     Route: 065
     Dates: start: 20150331
  22. PREDNISOLONE. [Concomitant]
     Active Substance: PREDNISOLONE
     Dosage: 6 DF, QD, FOR 5 DAYS
     Route: 065
     Dates: start: 20151012
  23. ASPIRIN. [Concomitant]
     Active Substance: ASPIRIN
     Dosage: 1 DF, QD
     Route: 065
     Dates: start: 20160113
  24. METOCLOPRAMIDE. [Concomitant]
     Active Substance: METOCLOPRAMIDE
     Dosage: 1 DF, TID
     Route: 065
     Dates: start: 20111130, end: 20151130

REACTIONS (4)
  - Abdominal pain [Unknown]
  - Cough [Recovering/Resolving]
  - Dry mouth [Unknown]
  - Back pain [Unknown]

NARRATIVE: CASE EVENT DATE: 20160222
